FAERS Safety Report 20031837 (Version 2)
Quarter: 2022Q3

REPORT INFORMATION
  Report Type: Spontaneous
  Country: US (occurrence: US)
  Receive Date: 20211103
  Receipt Date: 20220901
  Transmission Date: 20221026
  Serious: Yes (Other)
  Sender: FDA-Public Use
  Company Number: US-ABBVIE-21K-163-3722962-00

PATIENT
  Age: 66 Year
  Sex: Female

DRUGS (18)
  1. CLARITHROMYCIN [Suspect]
     Active Substance: CLARITHROMYCIN
     Indication: Product used for unknown indication
     Route: 048
  2. PREMARIN [Suspect]
     Active Substance: ESTROGENS, CONJUGATED
     Indication: Product used for unknown indication
     Dosage: TAKE 1 TAB (0.625 MG) BU MOUTH DAILY
     Route: 048
  3. CLINDAMYCIN [Suspect]
     Active Substance: CLINDAMYCIN
     Indication: Product used for unknown indication
     Route: 065
  4. HYDROXYZINE [Suspect]
     Active Substance: HYDROXYZINE HYDROCHLORIDE
     Indication: Product used for unknown indication
     Route: 065
  5. AMLODIPINE [Suspect]
     Active Substance: AMLODIPINE BESYLATE
     Indication: Product used for unknown indication
     Route: 065
  6. DEMEROL [Concomitant]
     Active Substance: MEPERIDINE HYDROCHLORIDE
     Indication: Pain
     Dosage: 1 TAB (50 MG) BY MOUTH EVERY 4 HOURS AS NEEDED FOR PAIN, MILD, MAX DAILY AMOUNT: 300 MG
     Route: 048
     Dates: start: 20201109
  7. ECOTRIN EC [Concomitant]
     Indication: Product used for unknown indication
     Dosage: TAKE 81 MG BY MOUTH DAILY AT BEDTIME.
     Route: 048
  8. LIPITOR [Concomitant]
     Active Substance: ATORVASTATIN CALCIUM
     Indication: Product used for unknown indication
     Dosage: TAKE 1 TAB (40 MG) BY MOUTH DAILY LATE.
     Route: 048
     Dates: start: 20201125
  9. BIOTIN [Concomitant]
     Active Substance: BIOTIN
     Indication: Product used for unknown indication
     Dosage: TAKE BY MOUTH DAILY AT BEDTIME.
     Route: 048
  10. CARDIZEM [Concomitant]
     Active Substance: DILTIAZEM HYDROCHLORIDE
     Indication: Product used for unknown indication
     Dosage: TAKE 1 CAPSULE BY MOUTH TWICE A DAY
     Route: 048
     Dates: start: 20201023
  11. ALLEGRA [Concomitant]
     Active Substance: FEXOFENADINE HYDROCHLORIDE
     Indication: Product used for unknown indication
     Dosage: TAKE 180 MG BY MOUTH DAILY AT BEDTIME.
     Route: 048
  12. BREO ELLIPTA [Concomitant]
     Active Substance: FLUTICASONE FUROATE\VILANTEROL TRIFENATATE
     Indication: Product used for unknown indication
     Dosage: 200-25 MCG/DOSE DISK WITH DEVICE?TAKE 1 SPRAY BY INHALATION DAILY AT BEDTIME.
     Route: 055
     Dates: start: 20210120
  13. FLONASE [Concomitant]
     Active Substance: FLUTICASONE PROPIONATE
     Indication: Product used for unknown indication
     Dosage: INSTILL 1 SPRAY INTO EACH NOSTRIL TWICE A DAY?MCG/SPRAY SPRAY, SUSPENSION
     Dates: start: 20191122
  14. PROBIOTICS NOS [Concomitant]
     Active Substance: PROBIOTICS NOS
     Indication: Product used for unknown indication
     Dosage: TAKE 1 CAP BY MOUTH DAILY
     Route: 048
  15. ATIVAN [Concomitant]
     Active Substance: LORAZEPAM
     Indication: Anxiety
     Dosage: TAKE 0.5 MG BY MOUTH EVERY 6 HOURS AS NEEDED FOR ANXIETY
     Route: 048
  16. LYRICA [Concomitant]
     Active Substance: PREGABALIN
     Indication: Product used for unknown indication
     Dosage: TAKE 1 CAP (75 MG) BY MOUTH EVERY 12 HOUR.?180
     Route: 048
     Dates: start: 20210120
  17. ANTIVERT [Concomitant]
     Active Substance: MECLIZINE HYDROCHLORIDE
     Indication: Product used for unknown indication
     Dosage: TAKE .1 TABLET BY MOUTH EVERY 8 HOURS AS NEEDED FOR DIZZINESS
     Dates: start: 20201207
  18. PRILOSEC [Concomitant]
     Active Substance: OMEPRAZOLE MAGNESIUM
     Indication: Product used for unknown indication
     Dosage: TAKE 1 CAP (40 MG) BY MOUTH DAILY EARLY MORNING
     Route: 048
     Dates: start: 20201021

REACTIONS (2)
  - Anaphylactic reaction [Unknown]
  - Drug hypersensitivity [Unknown]

NARRATIVE: CASE EVENT DATE: 20180430
